FAERS Safety Report 6822364-1 (Version None)
Quarter: 2010Q3

REPORT INFORMATION
  Report Type: 
  Country: None (occurrence: None)
  Receive Date: 20100708
  Receipt Date: 20100625
  Transmission Date: 20110219
  Serious: Yes (Hospitalization)
  Sender: FDA-Public Use
  Company Number: PHHY2010FR41988

PATIENT
  Age: 89 Year
  Sex: Female

DRUGS (3)
  1. RASILEZ [Suspect]
  2. IRBESARTAN + HYDROCHLOROTHIAZIDE [Concomitant]
  3. HYPERIUM [Concomitant]

REACTIONS (4)
  - BLOOD PRESSURE INCREASED [None]
  - HEADACHE [None]
  - MOVEMENT DISORDER [None]
  - VERTIGO [None]
